FAERS Safety Report 8177569-7 (Version None)
Quarter: 2012Q1

REPORT INFORMATION
  Report Type: 
  Country: None (occurrence: None)
  Receive Date: 20120301
  Receipt Date: 20120221
  Transmission Date: 20120608
  Serious: Yes (Hospitalization)
  Sender: FDA-Public Use
  Company Number: CH-ROCHE-1025192

PATIENT
  Age: 72 Year
  Sex: Male

DRUGS (12)
  1. ASPIRIN [Concomitant]
     Route: 048
  2. LENALIDOMIDE [Suspect]
     Indication: B-CELL LYMPHOMA
     Dosage: DATE OF LAST DOSE PRIOR TO SAE: 24/JAN/2012
     Route: 048
     Dates: start: 20111219
  3. ALLOPURINOL [Concomitant]
     Route: 048
     Dates: start: 20111219
  4. ASPIRIN [Concomitant]
     Dates: start: 20120206
  5. LENALIDOMIDE [Suspect]
     Dosage: DATE OF LAST DOSE PRIOR TO SAE: 17/FEB/2012
     Route: 048
     Dates: start: 20120131
  6. DEXAMETHASONE [Concomitant]
     Route: 048
     Dates: start: 20111219
  7. PAROXETINE [Concomitant]
     Route: 048
  8. MABTHERA [Suspect]
     Indication: B-CELL LYMPHOMA
     Dosage: DATE OF LAST DOSE PRIOR TO SAE: 13/FEB/2012
     Route: 042
     Dates: start: 20111219
  9. BENDAMUSTINE [Suspect]
     Indication: B-CELL LYMPHOMA
     Dosage: DATE OF LAST DOSE PRIOR TO SAE: 14/FEB/2012
     Route: 042
     Dates: start: 20111219
  10. GLUCOPHAGE [Concomitant]
     Route: 048
     Dates: start: 20111101
  11. SIMVASTATIN [Concomitant]
     Route: 048
  12. FRAXIFORTE [Concomitant]
     Route: 058
     Dates: start: 20120207, end: 20120217

REACTIONS (7)
  - VITREOUS HAEMORRHAGE [None]
  - PNEUMONITIS [None]
  - ARRHYTHMIA SUPRAVENTRICULAR [None]
  - ATRIAL FLUTTER [None]
  - SUPRAVENTRICULAR TACHYARRHYTHMIA [None]
  - NODAL ARRHYTHMIA [None]
  - LUNG INFILTRATION [None]
